FAERS Safety Report 6115931-4 (Version None)
Quarter: 2009Q1

REPORT INFORMATION
  Report Type: 
  Country: None (occurrence: None)
  Receive Date: 20090311
  Receipt Date: 20090217
  Transmission Date: 20090719
  Serious: Yes (Hospitalization)
  Sender: FDA-Public Use
  Company Number: 1000005094

PATIENT
  Age: 84 Year
  Sex: Male

DRUGS (7)
  1. NEBIVOLOL HCL [Suspect]
     Indication: HYPERTENSION
     Dosage: ORAL, 0.25 TABLET DAILY, ORAL
     Route: 048
     Dates: end: 20090109
  2. PERINDOPRIL ERBUMINE [Suspect]
     Indication: HYPERTENSION
     Dosage: ORAL
     Route: 048
  3. MODOPAR (BENSERAZIDE HYDROCHLORIDE/LEVODOPA) [Suspect]
     Indication: PARKINSON'S DISEASE
     Dosage: ORAL
     Route: 048
  4. LASIX [Concomitant]
  5. FUMAFER [Concomitant]
  6. ACETAMINOPHEN [Concomitant]
  7. PREVISCAN (FLUINDIONE) [Concomitant]

REACTIONS (6)
  - DISTURBANCE IN ATTENTION [None]
  - DROP ATTACKS [None]
  - FALL [None]
  - HIP FRACTURE [None]
  - ORTHOSTATIC HYPOTENSION [None]
  - RESPIRATORY DISTRESS [None]
